FAERS Safety Report 10450659 (Version 2)
Quarter: 2014Q4

REPORT INFORMATION
  Report Type: Spontaneous
  Country: US (occurrence: None)
  Receive Date: 20140910
  Receipt Date: 20141001
  Transmission Date: 20150528
  Serious: Yes (Other)
  Sender: FDA-Public Use
  Company Number: US-001137

PATIENT
  Age: 48 Year
  Sex: Female

DRUGS (7)
  1. NYSTATIN. [Concomitant]
     Active Substance: NYSTATIN
  2. DEXTROSE IN LACTATED RINGERS [Concomitant]
     Active Substance: CALCIUM CHLORIDE\DEXTROSE\DEXTROSE MONOHYDRATE\POTASSIUM CHLORIDE\SODIUM CHLORIDE\SODIUM LACTATE
  3. WARFARIN [Concomitant]
     Active Substance: WARFARIN
  4. GATTEX [Suspect]
     Active Substance: TEDUGLUTIDE\WATER
     Indication: SHORT-BOWEL SYNDROME
     Dosage: (0.39 ML QD, STERN/VOLUM: 0.39 ML/FREQU: ONE A DAY SUBCUTANEOUS), (0.39 ML QD, STERN/VOLUM: 0.39 ML/FREQU: ONE A DAY SUBCUTANEOUS),
     Dates: start: 20140202, end: 201407
  5. AMBIEN [Concomitant]
     Active Substance: ZOLPIDEM TARTRATE
  6. AFRIN [Concomitant]
     Active Substance: OXYMETAZOLINE
  7. ALPRAZOLAM. [Concomitant]
     Active Substance: ALPRAZOLAM

REACTIONS (5)
  - Abdominal pain [None]
  - Weight increased [None]
  - Stoma site haemorrhage [None]
  - Respiratory tract infection [None]
  - Flatulence [None]

NARRATIVE: CASE EVENT DATE: 201407
